FAERS Safety Report 8901952 (Version 1)
Quarter: 2012Q4

REPORT INFORMATION
  Report Type: Spontaneous
  Country: US (occurrence: None)
  Receive Date: 20121109
  Receipt Date: 20121109
  Transmission Date: 20130627
  Serious: Yes (Other)
  Sender: FDA-Public Use
  Company Number: None

PATIENT
  Sex: Female
  Weight: 72.58 kg

DRUGS (4)
  1. FLUCONAZOLE [Suspect]
     Indication: YEAST INFECTION
     Dosage: 150 mg one
     Dates: start: 20121011
  2. FLUCONAZOLE [Suspect]
     Indication: YEAST INFECTION
     Dosage: 150 mg one
     Dates: start: 20121011
  3. FLUCONAZOLE [Suspect]
     Indication: YEAST INFECTION
     Dates: start: 201108
  4. FLUCONAZOLE [Suspect]
     Indication: YEAST INFECTION
     Dates: start: 201108

REACTIONS (5)
  - Pruritus [None]
  - Erythema [None]
  - Scar [None]
  - Blister [None]
  - Oral mucosal erythema [None]
